FAERS Safety Report 13208009 (Version 1)
Quarter: 2017Q1

REPORT INFORMATION
  Report Type: Report from Study
  Country: BR (occurrence: BR)
  Receive Date: 20170209
  Receipt Date: 20170209
  Transmission Date: 20170428
  Serious: Yes (Hospitalization, Other)
  Sender: FDA-Public Use
  Company Number: BR-BAYER-2017-020621

PATIENT
  Age: 39 Year
  Sex: Female

DRUGS (8)
  1. PARACETAMOL [Concomitant]
     Active Substance: ACETAMINOPHEN
     Indication: PYREXIA
  2. IBUPROFEN. [Concomitant]
     Active Substance: IBUPROFEN
     Indication: PYREXIA
  3. DIPYRONE [Concomitant]
     Active Substance: DIPYRONE
     Indication: PYREXIA
  4. IBUPROFEN. [Concomitant]
     Active Substance: IBUPROFEN
     Indication: PREMEDICATION
     Dosage: 1 DF, QOD  (BEFORE BETAFERON INJECTIONS)
     Route: 048
     Dates: start: 2003
  5. DIPYRONE [Concomitant]
     Active Substance: DIPYRONE
     Indication: PREMEDICATION
     Dosage: 1 DF, QOD (BEFORE BETAFERON INJECTIONS)
     Route: 048
     Dates: start: 2003
  6. PARACETAMOL [Concomitant]
     Active Substance: ACETAMINOPHEN
     Indication: PREMEDICATION
     Dosage: 1 DF, QOD  (BEFORE BETAFERON INJECTIONS)
     Route: 048
     Dates: start: 2003
  7. BETAFERON [Suspect]
     Active Substance: INTERFERON BETA-1B
     Indication: RELAPSING-REMITTING MULTIPLE SCLEROSIS
     Dosage: 1 ML, QOD
     Dates: start: 2002, end: 201701
  8. BETAFERON [Suspect]
     Active Substance: INTERFERON BETA-1B
     Indication: RELAPSING-REMITTING MULTIPLE SCLEROSIS
     Dosage: 1 ML, TIW (MONDAY, WEDNESDAY AND FRIDAY)
     Dates: start: 201701

REACTIONS (19)
  - Multiple sclerosis relapse [Recovered/Resolved]
  - Injection site mass [Not Recovered/Not Resolved]
  - Injection site pain [Recovered/Resolved]
  - Hemianaesthesia [Recovered/Resolved with Sequelae]
  - Hypothermia [Not Recovered/Not Resolved]
  - Injection site pain [Not Recovered/Not Resolved]
  - Injection site haematoma [Not Recovered/Not Resolved]
  - Headache [None]
  - White blood cell disorder [None]
  - Multiple sclerosis relapse [Recovered/Resolved with Sequelae]
  - Immunodeficiency [None]
  - Injection site injury [Recovered/Resolved]
  - Urinary incontinence [None]
  - Hypoaesthesia [Recovered/Resolved]
  - Nausea [None]
  - Multiple sclerosis relapse [None]
  - Chills [Not Recovered/Not Resolved]
  - Syringe issue [None]
  - Incorrect dose administered [None]

NARRATIVE: CASE EVENT DATE: 2002
